FAERS Safety Report 8948185 (Version 1)
Quarter: 2012Q4

REPORT INFORMATION
  Report Type: Spontaneous
  Country: US (occurrence: None)
  Receive Date: 20121126
  Receipt Date: 20121126
  Transmission Date: 20130627
  Serious: Yes (Hospitalization)
  Sender: FDA-Public Use
  Company Number: JPI-P-025299

PATIENT
  Age: 52 Year
  Sex: Male

DRUGS (4)
  1. XYREM (500 MILLIGRAM/MILLILITERS, SOLUTION) (SODIUM OXYBATE) [Suspect]
     Dosage: 6 gm (3 gm, 2 in 1 D), Oral
     Route: 048
     Dates: start: 20110824
  2. XYREM (500 MILLIGRAM/MILLILITERS, SOLUTION) (SODIUM OXYBATE) [Suspect]
     Route: 048
  3. XYREM (500 MILLIGRAM/MILLILITERS, SOLUTION) (SODIUM OXYBATE) [Suspect]
     Dosage: 9 gm (4.5 gm, 2 in 1 D), Oral
     Route: 048
     Dates: start: 20121020
  4. XYREM (500 MILLIGRAM/MILLILITERS, SOLUTION) (SODIUM OXYBATE) [Suspect]
     Dosage: (First dose 4.5 gm/second dose 3.75 gm), Oral
     Route: 048

REACTIONS (11)
  - Nightmare [None]
  - Somnambulism [None]
  - Weight decreased [None]
  - Drug effect decreased [None]
  - Pulmonary thrombosis [None]
  - Abnormal behaviour [None]
  - Fall [None]
  - Memory impairment [None]
  - Anger [None]
  - Anger [None]
  - Loss of consciousness [None]
